FAERS Safety Report 4490707-2 (Version None)
Quarter: 2004Q4

REPORT INFORMATION
  Report Type: 
  Country: None (occurrence: None)
  Receive Date: 20041102
  Receipt Date: 20041021
  Transmission Date: 20050328
  Serious: Yes (Hospitalization)
  Sender: FDA-Public Use
  Company Number: FR-ROCHE-383891

PATIENT
  Age: 78 Year
  Sex: Female

DRUGS (5)
  1. ROCEPHIN [Suspect]
     Indication: INFECTION
     Route: 030
     Dates: start: 20040324, end: 20040604
  2. PYOSTACINE [Suspect]
     Indication: INFECTION
     Route: 048
     Dates: start: 20040324, end: 20040505
  3. PYOSTACINE [Suspect]
     Route: 048
     Dates: start: 20040506, end: 20040604
  4. PHENERGAN [Suspect]
     Indication: DRUG USE FOR UNKNOWN INDICATION
     Dosage: TAKEN DAILY.
     Route: 048
     Dates: end: 20040605
  5. ZYVOXID [Suspect]
     Indication: INFECTION
     Route: 048
     Dates: start: 20040324, end: 20040604

REACTIONS (8)
  - ACIDOSIS [None]
  - ANAEMIA [None]
  - BONE MARROW TOXICITY [None]
  - DYSPNOEA EXERTIONAL [None]
  - GENERAL PHYSICAL HEALTH DETERIORATION [None]
  - INFLAMMATION [None]
  - MEDICATION ERROR [None]
  - THROMBOCYTOPENIA [None]
